FAERS Safety Report 6903147-0 (Version None)
Quarter: 2010Q3

REPORT INFORMATION
  Report Type: 
  Country: None (occurrence: None)
  Receive Date: 20100803
  Receipt Date: 20080718
  Transmission Date: 20110219
  Serious: No
  Sender: FDA-Public Use
  Company Number: US-PFIZER INC-2008061181

PATIENT
  Sex: Female

DRUGS (15)
  1. LYRICA [Suspect]
     Indication: MENISCUS LESION
     Dates: start: 20080320, end: 20080420
  2. LYRICA [Suspect]
     Indication: BACK PAIN
  3. METHADONE HCL [Concomitant]
  4. CYMBALTA [Concomitant]
  5. NEXIUM [Concomitant]
  6. BACLOFEN [Concomitant]
  7. PROVIGIL [Concomitant]
  8. BUSPAR [Concomitant]
  9. POTASSIUM [Concomitant]
  10. GINKGO BILOBA [Concomitant]
  11. MONTELUKAST SODIUM [Concomitant]
  12. VITAMINS WITH MINERALS [Concomitant]
  13. LAXATIVES [Concomitant]
  14. FISH OIL [Concomitant]
  15. VITACAL [Concomitant]

REACTIONS (1)
  - WEIGHT INCREASED [None]
